FAERS Safety Report 10034310 (Version 1)
Quarter: 2014Q1

REPORT INFORMATION
  Report Type: Spontaneous
  Country: US (occurrence: None)
  Receive Date: 20140321
  Receipt Date: 20140321
  Transmission Date: 20141002
  Serious: Yes (Other)
  Sender: FDA-Public Use
  Company Number: 2014US00214

PATIENT
  Age: 70 Year
  Sex: Male

DRUGS (2)
  1. DONEPEZIL [Suspect]
     Indication: PSYCHOTIC DISORDER
  2. QUETIAPINE [Suspect]
     Indication: PSYCHOTIC DISORDER
     Dosage: AT BEDTIME

REACTIONS (4)
  - Mania [None]
  - Elevated mood [None]
  - Agitation [None]
  - Logorrhoea [None]
